FAERS Safety Report 12052846 (Version 3)
Quarter: 2016Q1

REPORT INFORMATION
  Report Type: Spontaneous
  Country: US (occurrence: US)
  Receive Date: 20160209
  Receipt Date: 20160224
  Transmission Date: 20160526
  Serious: Yes (Hospitalization, Other)
  Sender: FDA-Public Use
  Company Number: US-PFIZER INC-2016060253

PATIENT
  Age: 48 Year
  Sex: Male
  Weight: 68 kg

DRUGS (2)
  1. RAPAMUNE [Suspect]
     Active Substance: SIROLIMUS
     Indication: IMMUNOSUPPRESSION
     Dosage: 2 UNK, UNK
  2. RAPAMUNE [Suspect]
     Active Substance: SIROLIMUS
     Dosage: 1 MG, 1X/DAY
     Route: 048
     Dates: start: 201209

REACTIONS (3)
  - Vomiting [Recovering/Resolving]
  - Small intestinal obstruction [Recovering/Resolving]
  - Adhesion [Not Recovered/Not Resolved]

NARRATIVE: CASE EVENT DATE: 201512
